FAERS Safety Report 10644231 (Version 2)
Quarter: 2014Q4

REPORT INFORMATION
  Report Type: Report from Study
  Country: US (occurrence: US)
  Receive Date: 20141210
  Receipt Date: 20141210
  Transmission Date: 20150529
  Serious: Yes (Life-Threatening, Hospitalization)
  Sender: FDA-Public Use
  Company Number: US-MERCK-1412USA002771

PATIENT
  Age: 66 Year
  Sex: Female
  Weight: 71.8 kg

DRUGS (3)
  1. MK-7965 [Suspect]
     Active Substance: DINACICLIB
     Indication: PLASMA CELL MYELOMA
     Dosage: 12 MG/M2 (2HOURS ON DAYS 1,8, AND 15) (A2, CYCLE OF 28 DAYS)
     Route: 042
     Dates: start: 20141017, end: 20141030
  2. BORTEZOMIB [Suspect]
     Active Substance: BORTEZOMIB
     Indication: PLASMA CELL MYELOMA
     Dosage: 1.3 MG/M2 (ON DAYS 1, 8 AND 15) (A2, CYCLE OF 28 DAYS)
     Route: 058
     Dates: start: 20141017, end: 20141030
  3. DEXAMETHASONE. [Suspect]
     Active Substance: DEXAMETHASONE
     Indication: PLASMA CELL MYELOMA
     Dosage: 20 MG (ON DAYS 1, 2, 8, 9, 15 AND 16) (A2, CYCLE OF 28 DAYS) (A2, CYCLE OF 28 DAYS)
     Route: 048
     Dates: start: 20141017, end: 20141031

REACTIONS (2)
  - Blood creatinine increased [Not Recovered/Not Resolved]
  - Platelet count decreased [Not Recovered/Not Resolved]

NARRATIVE: CASE EVENT DATE: 20141107
